FAERS Safety Report 13301045 (Version 1)
Quarter: 2017Q1

REPORT INFORMATION
  Report Type: Spontaneous
  Country: US (occurrence: US)
  Receive Date: 20170307
  Receipt Date: 20170307
  Transmission Date: 20170428
  Serious: No
  Sender: FDA-Public Use
  Company Number: US-BAYER-2017-042479

PATIENT
  Age: 77 Year
  Sex: Female
  Weight: 62.99 kg

DRUGS (1)
  1. MIRALAX [Suspect]
     Active Substance: POLYETHYLENE GLYCOL 3350
     Indication: CONSTIPATION
     Dosage: 17 G MIXED WITH 4-8 OZ OF BEVERAGE
     Route: 048
     Dates: start: 2015, end: 20170303

REACTIONS (3)
  - Off label use [Unknown]
  - Product use issue [Unknown]
  - Flatulence [Not Recovered/Not Resolved]

NARRATIVE: CASE EVENT DATE: 2015
